FAERS Safety Report 5384659-0 (Version None)
Quarter: 2007Q3

REPORT INFORMATION
  Report Type: 
  Country: None (occurrence: None)
  Receive Date: 20070710
  Receipt Date: 20070112
  Transmission Date: 20080115
  Serious: Yes (Hospitalization, Other)
  Sender: FDA-Public Use
  Company Number: 2007-00093

PATIENT
  Age: 52 Year
  Sex: Female
  Weight: 82.5 kg

DRUGS (13)
  1. VELCADE [Suspect]
     Indication: MULTIPLE MYELOMA
     Dosage: 2.50 MG, IV BOLUS
     Route: 040
     Dates: start: 20061110
  2. VELCADE [Suspect]
     Indication: MULTIPLE MYELOMA
     Dosage: 2.50 MG, IV BOLUS
     Route: 040
     Dates: start: 20061113
  3. VELCADE [Suspect]
     Indication: MULTIPLE MYELOMA
     Dosage: 2.50 MG, IV BOLUS
     Route: 040
     Dates: start: 20061117
  4. VELCADE [Suspect]
     Indication: MULTIPLE MYELOMA
     Dosage: 2.50 MG, IV BOLUS
     Route: 040
     Dates: start: 20061120
  5. VELCADE [Suspect]
     Indication: MULTIPLE MYELOMA
     Dosage: 2.50 MG, IV BOLUS
     Route: 040
     Dates: start: 20061209
  6. VELCADE [Suspect]
     Indication: MULTIPLE MYELOMA
     Dosage: 2.50 MG, IV BOLUS
     Route: 040
     Dates: start: 20070102
  7. VELCADE [Suspect]
     Indication: MULTIPLE MYELOMA
     Dosage: 2.50 MG, IV BOLUS
     Route: 040
     Dates: start: 20070105
  8. VELCADE [Suspect]
     Indication: MULTIPLE MYELOMA
     Dosage: 2.50 MG, IV BOLUS
     Route: 040
     Dates: start: 20070110
  9. LISINOPRIL [Concomitant]
  10. ZOMETA [Concomitant]
  11. OXYCONTIN [Concomitant]
  12. COREG [Concomitant]
  13. COUMADIN [Concomitant]

REACTIONS (2)
  - CARDIAC FAILURE CONGESTIVE [None]
  - SINUS BRADYCARDIA [None]
